FAERS Safety Report 16236729 (Version 2)
Quarter: 2019Q2

REPORT INFORMATION
  Report Type: Spontaneous
  Country: FR (occurrence: FR)
  Receive Date: 20190425
  Receipt Date: 20190514
  Transmission Date: 20190711
  Serious: Yes (Hospitalization, Other)
  Sender: FDA-Public Use
  Company Number: FR-ASTELLAS-2019US017721

PATIENT
  Age: 17 Year
  Sex: Male

DRUGS (10)
  1. TACROLIMUS. [Suspect]
     Active Substance: TACROLIMUS
     Indication: LIVER TRANSPLANT
     Dosage: 0.6 MG, ONCE DAILY
     Route: 065
     Dates: start: 2014
  2. VORICONAZOLE. [Interacting]
     Active Substance: VORICONAZOLE
     Indication: SCEDOSPORIUM INFECTION
  3. MYCOPHENOLATE MOFETIL. [Concomitant]
     Active Substance: MYCOPHENOLATE MOFETIL
     Indication: LIVER TRANSPLANT
     Dosage: UNK UNK, UNKNOWN FREQ.
     Route: 065
     Dates: end: 201409
  4. LUMACAFTOR [Interacting]
     Active Substance: LUMACAFTOR
     Indication: HAEMOPTYSIS
     Route: 065
  5. LUMACAFTOR [Interacting]
     Active Substance: LUMACAFTOR
     Indication: PULMONARY FUNCTION TEST DECREASED
     Route: 065
  6. IVACAFTOR [Interacting]
     Active Substance: IVACAFTOR
     Indication: RESPIRATORY DISORDER
     Route: 065
  7. VORICONAZOLE. [Interacting]
     Active Substance: VORICONAZOLE
     Indication: PROPHYLAXIS
     Route: 065
  8. IVACAFTOR [Interacting]
     Active Substance: IVACAFTOR
     Indication: HAEMOPTYSIS
     Route: 065
  9. IVACAFTOR [Interacting]
     Active Substance: IVACAFTOR
     Indication: PULMONARY FUNCTION TEST DECREASED
     Route: 065
  10. LUMACAFTOR [Interacting]
     Active Substance: LUMACAFTOR
     Indication: RESPIRATORY DISORDER
     Route: 065

REACTIONS (5)
  - Haemoptysis [Recovered/Resolved]
  - Drug interaction [Unknown]
  - Respiratory disorder [Recovered/Resolved]
  - Scedosporium infection [Recovered/Resolved]
  - Pulmonary function test decreased [Recovered/Resolved]
